FAERS Safety Report 5849789-5 (Version None)
Quarter: 2008Q3

REPORT INFORMATION
  Report Type: 
  Country: None (occurrence: None)
  Receive Date: 20080818
  Receipt Date: 20080818
  Transmission Date: 20090109
  Serious: Yes (Life-Threatening, Hospitalization, Other)
  Sender: FDA-Public Use
  Company Number: None

PATIENT
  Sex: Male
  Weight: 219.9946 kg

DRUGS (1)
  1. DIGITEK / LANOXIN 250 MCG [Suspect]
     Indication: ATRIAL FIBRILLATION
     Dosage: 1 DAY PO
     Route: 048

REACTIONS (5)
  - DRUG INEFFECTIVE [None]
  - DYSPNOEA [None]
  - FLUID RETENTION [None]
  - HEART RATE DECREASED [None]
  - RENAL DISORDER [None]
